FAERS Safety Report 6124571-2 (Version None)
Quarter: 2009Q1

REPORT INFORMATION
  Report Type: 
  Country: None (occurrence: None)
  Receive Date: 20090319
  Receipt Date: 20090313
  Transmission Date: 20090719
  Serious: Yes (Hospitalization)
  Sender: FDA-Public Use
  Company Number: US-GILEAD-2009-0020873

PATIENT
  Sex: Female

DRUGS (10)
  1. LETAIRIS [Suspect]
     Indication: PULMONARY ARTERIAL HYPERTENSION
     Route: 048
     Dates: start: 20090225
  2. REVATIO [Concomitant]
  3. LASIX [Concomitant]
  4. METOPROLOL TARTRATE [Concomitant]
  5. PREDNISONE [Concomitant]
  6. FLONASE [Concomitant]
     Route: 045
  7. BUDESONIDE [Concomitant]
  8. XOPENEX [Concomitant]
  9. PERFOROMIST [Concomitant]
  10. ZOCOR [Concomitant]

REACTIONS (1)
  - UNEVALUABLE EVENT [None]
